FAERS Safety Report 21379016 (Version 2)
Quarter: 2022Q4

REPORT INFORMATION
  Report Type: Report from Study
  Country: FR (occurrence: FR)
  Receive Date: 20220927
  Receipt Date: 20221001
  Transmission Date: 20230113
  Serious: Yes (Hospitalization)
  Sender: FDA-Public Use
  Company Number: FR-ABBVIE-4131240

PATIENT
  Sex: Female
  Weight: 51 kg

DRUGS (7)
  1. UPADACITINIB [Suspect]
     Active Substance: UPADACITINIB
     Indication: Axial spondyloarthritis
     Route: 048
     Dates: start: 20220707
  2. PANTOPRAZOLE [Concomitant]
     Active Substance: PANTOPRAZOLE
     Indication: Gastrointestinal disorder prophylaxis
     Route: 048
     Dates: start: 2000
  3. DICLOFENAC [Concomitant]
     Active Substance: DICLOFENAC
     Indication: Axial spondyloarthritis
     Dosage: AS NEEDED
     Route: 048
  4. ACETAMINOPHEN [Concomitant]
     Active Substance: ACETAMINOPHEN
     Indication: Axial spondyloarthritis
     Dosage: OCCASIONAL
     Route: 048
     Dates: start: 2000
  5. TRAMADOL [Concomitant]
     Active Substance: TRAMADOL
     Indication: Axial spondyloarthritis
     Dosage: AS NEEDED
     Route: 048
  6. TRAMADOL [Concomitant]
     Active Substance: TRAMADOL
     Indication: Axial spondyloarthritis
     Route: 048
     Dates: start: 2016
  7. ALMOTRIPTAN EG [Concomitant]
     Indication: Headache
     Dosage: OCCASIONAL
     Route: 048
     Dates: start: 2018

REACTIONS (1)
  - Tooth extraction [Recovered/Resolved]

NARRATIVE: CASE EVENT DATE: 20220729
